FAERS Safety Report 9760950 (Version 1)
Quarter: 2013Q4

REPORT INFORMATION
  Report Type: Spontaneous
  Country: HR (occurrence: HR)
  Receive Date: 20131216
  Receipt Date: 20131216
  Transmission Date: 20140711
  Serious: Yes (Disabling)
  Sender: FDA-Public Use
  Company Number: HR-PFIZER INC-2013357292

PATIENT
  Age: 59 Year
  Sex: Male
  Weight: 78 kg

DRUGS (2)
  1. CISPLATIN [Suspect]
     Indication: BRONCHIAL CARCINOMA
     Dosage: 100 MG, DAILY
     Route: 041
     Dates: start: 20130822, end: 20131024
  2. GEMCITABINE [Concomitant]
     Indication: BRONCHIAL CARCINOMA
     Dosage: INFUSION AMPOULES, DRY VIALS/BOTTLES (1600 MG)
     Route: 041
     Dates: start: 20130822, end: 20131031

REACTIONS (3)
  - Tinnitus [Recovered/Resolved with Sequelae]
  - Sleep disorder [Recovered/Resolved with Sequelae]
  - Communication disorder [Recovered/Resolved with Sequelae]
